FAERS Safety Report 6610596-7 (Version None)
Quarter: 2010Q1

REPORT INFORMATION
  Report Type: 
  Country: None (occurrence: None)
  Receive Date: 20100302
  Receipt Date: 20100217
  Transmission Date: 20100710
  Serious: Yes (Other)
  Sender: FDA-Public Use
  Company Number: US-PFIZER INC-2010021459

PATIENT
  Sex: Male

DRUGS (4)
  1. CHANTIX [Suspect]
     Indication: SMOKING CESSATION THERAPY
     Dosage: 0.5 MG, 1X/DAY
     Route: 048
     Dates: start: 20100203
  2. CHANTIX [Suspect]
     Dosage: 1.0 MG, 2X/DAY
     Route: 048
     Dates: end: 20100216
  3. CLONIDINE [Concomitant]
     Dosage: UNK
  4. GLUCOPHAGE [Concomitant]
     Dosage: UNK

REACTIONS (3)
  - RASH [None]
  - SKIN EXFOLIATION [None]
  - SUNBURN [None]
